FAERS Safety Report 4433423-5 (Version None)
Quarter: 2004Q3

REPORT INFORMATION
  Report Type: 
  Country: None (occurrence: None)
  Receive Date: 20040824
  Receipt Date: 20040811
  Transmission Date: 20050211
  Serious: Yes (Hospitalization, Other)
  Sender: FDA-Public Use
  Company Number: 2004052251

PATIENT
  Age: 8 Day
  Sex: Male

DRUGS (1)
  1. ATARAX [Suspect]
     Indication: ILL-DEFINED DISORDER

REACTIONS (7)
  - DRUG EXPOSURE DURING PREGNANCY [None]
  - FEEDING PROBLEM IN NEWBORN [None]
  - FLATULENCE [None]
  - GASTROINTESTINAL DISORDER [None]
  - LETHARGY [None]
  - MECONIUM PLUG SYNDROME [None]
  - NEONATAL DISORDER [None]
